FAERS Safety Report 21093918 (Version 2)
Quarter: 2022Q3

REPORT INFORMATION
  Report Type: Report from Study
  Country: CA (occurrence: CA)
  Receive Date: 20220718
  Receipt Date: 20220720
  Transmission Date: 20221027
  Serious: Yes (Hospitalization, Other)
  Sender: FDA-Public Use
  Company Number: CA-JNJFOC-20220717919

PATIENT
  Age: 23 Year
  Sex: Male

DRUGS (2)
  1. STELARA [Suspect]
     Active Substance: USTEKINUMAB
     Indication: Crohn^s disease
     Dosage: ON 08-JUL-2022, THE PATIENT RECEIVED 2ND USTEKINUMAB INJECTION AT DOSE OF 90 MG AND PARTIAL HARVEY-B
     Route: 058
     Dates: start: 20220513
  2. FLAGYL [Concomitant]
     Active Substance: METRONIDAZOLE\METRONIDAZOLE HYDROCHLORIDE
     Indication: Product used for unknown indication
     Route: 048

REACTIONS (9)
  - Rectal abscess [Unknown]
  - Surgery [Not Recovered/Not Resolved]
  - Fistula [Unknown]
  - Weight decreased [Unknown]
  - Decreased appetite [Unknown]
  - General physical health deterioration [Unknown]
  - Abdominal pain [Unknown]
  - Diarrhoea [Unknown]
  - Frequent bowel movements [Unknown]

NARRATIVE: CASE EVENT DATE: 20220101
